FAERS Safety Report 6924241-4 (Version None)
Quarter: 2010Q3

REPORT INFORMATION
  Report Type: 
  Country: None (occurrence: None)
  Receive Date: 20100811
  Receipt Date: 20100811
  Transmission Date: 20110219
  Serious: Yes (Hospitalization)
  Sender: FDA-Public Use
  Company Number: None

PATIENT
  Sex: Male
  Weight: 96.4 kg

DRUGS (3)
  1. DAUNORUBICIN HCL [Suspect]
     Dosage: 165 MG
  2. PEG-L-ASPARAGINASE (K-H) [Suspect]
     Dosage: 5500 IU
     Dates: end: 20100720
  3. VINCRISTINE SULFATE [Suspect]
     Dosage: 6 MG
     Dates: end: 20100730

REACTIONS (2)
  - CHOLESTASIS [None]
  - HEPATIC STEATOSIS [None]
